FAERS Safety Report 18295422 (Version 3)
Quarter: 2020Q4

REPORT INFORMATION
  Report Type: Report from Study
  Country: US (occurrence: US)
  Receive Date: 20200922
  Receipt Date: 20201026
  Transmission Date: 20210113
  Serious: No
  Sender: FDA-Public Use
  Company Number: NVSC2020US252214

PATIENT
  Age: 50 Year
  Sex: Male

DRUGS (2)
  1. GILENYA [Suspect]
     Active Substance: FINGOLIMOD HYDROCHLORIDE
     Indication: MULTIPLE SCLEROSIS
     Dosage: 0.5 MG, QD
     Route: 048
     Dates: start: 20200822
  2. GILENYA [Suspect]
     Active Substance: FINGOLIMOD HYDROCHLORIDE
     Dosage: 0.5 UNK
     Route: 048
     Dates: start: 20200821

REACTIONS (12)
  - Cognitive disorder [Unknown]
  - Muscle spasticity [Unknown]
  - Pain [Unknown]
  - Gastric disorder [Unknown]
  - Arthralgia [Unknown]
  - Bladder disorder [Unknown]
  - Trigeminal neuralgia [Unknown]
  - Sensory disturbance [Unknown]
  - Bladder discomfort [Unknown]
  - Fatigue [Unknown]
  - Depression [Unknown]
  - Musculoskeletal stiffness [Unknown]

NARRATIVE: CASE EVENT DATE: 20201013
